FAERS Safety Report 9293555 (Version 1)
Quarter: 2013Q2

REPORT INFORMATION
  Report Type: Spontaneous
  Country: DE (occurrence: DE)
  Receive Date: 20130516
  Receipt Date: 20130516
  Transmission Date: 20140414
  Serious: Yes (Other)
  Sender: FDA-Public Use
  Company Number: DE-TEVA-404332GER

PATIENT
  Sex: 0

DRUGS (3)
  1. COPAXONE [Suspect]
     Indication: MULTIPLE SCLEROSIS
     Dates: end: 201210
  2. COPAXONE [Suspect]
     Dates: start: 2012
  3. CORTISONE [Suspect]

REACTIONS (11)
  - Circulatory collapse [Unknown]
  - Multiple sclerosis relapse [Not Recovered/Not Resolved]
  - Loss of control of legs [Unknown]
  - Injection site pain [Recovering/Resolving]
  - Injection site haematoma [Recovered/Resolved]
  - Injection site discolouration [Recovered/Resolved]
  - Off label use [Unknown]
  - Fear of injection [Unknown]
  - Injection site pruritus [Unknown]
  - Osteoporosis [Unknown]
  - Vitamin D deficiency [Unknown]
